FAERS Safety Report 8120758-8 (Version None)
Quarter: 2012Q1

REPORT INFORMATION
  Report Type: 
  Country: None (occurrence: None)
  Receive Date: 20120207
  Receipt Date: 20120201
  Transmission Date: 20120608
  Serious: Yes (Death, Hospitalization, Other)
  Sender: FDA-Public Use
  Company Number: KR-ABBOTT-12P-090-0892403-00

PATIENT
  Sex: Male
  Weight: 67 kg

DRUGS (9)
  1. EPORON [Concomitant]
     Route: 042
     Dates: start: 20091031, end: 20091128
  2. EPORON [Concomitant]
     Indication: ANAEMIA
     Route: 042
     Dates: start: 20090312, end: 20090822
  3. EPORON [Concomitant]
     Route: 042
     Dates: start: 20080822, end: 20090926
  4. EPORON [Concomitant]
     Route: 042
     Dates: start: 20080822, end: 20090926
  5. EPORON [Concomitant]
     Route: 042
     Dates: start: 20091128, end: 20100102
  6. EPORON [Concomitant]
     Route: 042
     Dates: start: 20100102
  7. ZEMPLAR [Suspect]
     Indication: HYPERPARATHYROIDISM
     Route: 042
     Dates: start: 20090609, end: 20100731
  8. PHOSLO [Concomitant]
     Indication: HYPERPARATHYROIDISM
     Route: 048
     Dates: start: 20090312
  9. BONKY [Concomitant]
     Indication: HYPERPARATHYROIDISM
     Route: 042
     Dates: start: 20090312, end: 20090609

REACTIONS (10)
  - STRESS CARDIOMYOPATHY [None]
  - DYSPNOEA [None]
  - BUNDLE BRANCH BLOCK RIGHT [None]
  - INTRAVENTRICULAR HAEMORRHAGE [None]
  - EJECTION FRACTION DECREASED [None]
  - HAEMODIALYSIS [None]
  - VENTRICULAR HYPOKINESIA [None]
  - CEREBRAL HAEMORRHAGE [None]
  - MYOCARDIAL ISCHAEMIA [None]
  - SUBARACHNOID HAEMORRHAGE [None]
